FAERS Safety Report 7205802-4 (Version None)
Quarter: 2010Q4

REPORT INFORMATION
  Report Type: 
  Country: None (occurrence: None)
  Receive Date: 20101231
  Receipt Date: 20101221
  Transmission Date: 20110411
  Serious: Yes (Hospitalization)
  Sender: FDA-Public Use
  Company Number: ES-MERCK-0910ESP00008

PATIENT
  Age: 76 Year
  Sex: Male

DRUGS (6)
  1. ZETIA [Suspect]
     Indication: HYPERLIPIDAEMIA
     Route: 048
     Dates: start: 20070101
  2. ENALAPRIL MALEATE [Suspect]
     Indication: HYPERTENSION
     Route: 048
  3. DARBEPOETIN ALFA [Suspect]
     Indication: ANAEMIA
     Route: 058
     Dates: start: 20061101
  4. OMEPRAZOLE [Suspect]
     Route: 048
  5. CLOPIDOGREL BISULFATE [Suspect]
     Route: 048
     Dates: start: 20070101
  6. ATORVASTATIN CALCIUM [Suspect]
     Indication: HYPERLIPIDAEMIA
     Route: 048
     Dates: start: 20070101

REACTIONS (1)
  - EOSINOPHILIA [None]
